FAERS Safety Report 17605519 (Version 11)
Quarter: 2022Q4

REPORT INFORMATION
  Report Type: Spontaneous
  Country: US (occurrence: US)
  Receive Date: 20200331
  Receipt Date: 20221201
  Transmission Date: 20230112
  Serious: No
  Sender: FDA-Public Use
  Company Number: US-SA-2020SA079476

PATIENT
  Age: 37 Year
  Sex: Male

DRUGS (4)
  1. CERDELGA [Suspect]
     Active Substance: ELIGLUSTAT
     Indication: Gaucher^s disease
     Dosage: 84 MG, BID
     Route: 048
     Dates: start: 20200305
  2. CERDELGA [Suspect]
     Active Substance: ELIGLUSTAT
     Dosage: 84 MG, BID
     Route: 048
     Dates: start: 20200306, end: 2020
  3. CERDELGA [Suspect]
     Active Substance: ELIGLUSTAT
     Dosage: 84 MG, BID
     Route: 048
     Dates: start: 2020, end: 2020
  4. CERDELGA [Suspect]
     Active Substance: ELIGLUSTAT
     Dosage: 84 MG, BID
     Route: 048
     Dates: start: 20200331

REACTIONS (4)
  - Nasopharyngitis [Unknown]
  - Memory impairment [Unknown]
  - Product dose omission in error [Unknown]
  - Intentional dose omission [Unknown]

NARRATIVE: CASE EVENT DATE: 20200101
